FAERS Safety Report 9619744 (Version 1)
Quarter: 2013Q4

REPORT INFORMATION
  Report Type: Spontaneous
  Country: US (occurrence: US)
  Receive Date: 20131014
  Receipt Date: 20131014
  Transmission Date: 20140711
  Serious: Yes (Hospitalization, Other)
  Sender: FDA-Public Use
  Company Number: US-GLAXOSMITHKLINE-A1045050A

PATIENT
  Sex: Male

DRUGS (8)
  1. ADVAIR [Suspect]
     Indication: ASTHMA
     Dosage: 1PUFF TWICE PER DAY
     Route: 055
  2. ASPIRIN [Concomitant]
  3. FLUTICASONE [Concomitant]
  4. METFORMIN [Concomitant]
  5. PRAVASTATIN [Concomitant]
  6. MONTELUKAST [Concomitant]
  7. METOPROLOL [Concomitant]
  8. AMLODIPINE [Concomitant]

REACTIONS (4)
  - Stent placement [Unknown]
  - Chest pain [Unknown]
  - Dyspepsia [Unknown]
  - Obstruction [Unknown]
